FAERS Safety Report 5774226-9 (Version None)
Quarter: 2008Q2

REPORT INFORMATION
  Report Type: 
  Country: None (occurrence: None)
  Receive Date: 20080601
  Receipt Date: 20080324
  Transmission Date: 20081010
  Serious: No
  Sender: FDA-Public Use
  Company Number: US200803005696

PATIENT
  Age: 58 Year
  Sex: Female

DRUGS (5)
  1. BYETTA [Suspect]
     Indication: TYPE 2 DIABETES MELLITUS
     Dosage: 5 UG, 2/D, SUBCUTANEOUS
     Route: 058
     Dates: start: 20071101
  2. CORTISONE (CORTISONE) [Concomitant]
  3. TOPROL-XL [Concomitant]
  4. ENALAPRIL MALEATE [Concomitant]
  5. TYLENOL /USA/ (PARACETAMOL) [Concomitant]

REACTIONS (2)
  - NAUSEA [None]
  - NERVOUSNESS [None]
